FAERS Safety Report 4591399-4 (Version None)
Quarter: 2005Q1

REPORT INFORMATION
  Report Type: 
  Country: None (occurrence: None)
  Receive Date: 20050222
  Receipt Date: 20050209
  Transmission Date: 20050727
  Serious: Yes (Hospitalization)
  Sender: FDA-Public Use
  Company Number: 2004S1000243

PATIENT
  Age: 82 Year
  Sex: Male

DRUGS (12)
  1. CUBICIN [Suspect]
     Indication: STAPHYLOCOCCAL INFECTION
     Dosage: 500 MG;Q24H; IV
     Route: 042
     Dates: start: 20041005, end: 20041011
  2. LOPRESSOR [Concomitant]
  3. LASIX [Concomitant]
  4. REGLAN [Concomitant]
  5. TYLENOL (CAPLET) [Concomitant]
  6. LOMOTIL [Concomitant]
  7. VERSED [Concomitant]
  8. ACYCLOVIR [Concomitant]
  9. VANCOMYCIN [Concomitant]
  10. EPOGEN [Concomitant]
  11. SPORANOX [Concomitant]
  12. CIPROFLOXACIN [Concomitant]

REACTIONS (12)
  - BACTERIAL INFECTION [None]
  - BLOOD CULTURE POSITIVE [None]
  - ERYTHEMA MULTIFORME [None]
  - GENERALISED OEDEMA [None]
  - HYPOTENSION [None]
  - NEOPLASM [None]
  - SPUTUM CULTURE POSITIVE [None]
  - STAPHYLOCOCCAL INFECTION [None]
  - STEVENS-JOHNSON SYNDROME [None]
  - TACHYCARDIA [None]
  - TOXIC EPIDERMAL NECROLYSIS [None]
  - URINARY TRACT INFECTION [None]
